FAERS Safety Report 17289203 (Version 1)
Quarter: 2020Q1

REPORT INFORMATION
  Report Type: Spontaneous
  Country: US (occurrence: US)
  Receive Date: 20200120
  Receipt Date: 20200120
  Transmission Date: 20200409
  Serious: Yes (Other)
  Sender: FDA-Public Use
  Company Number: US-TEVA-2020-US-1172803

PATIENT
  Sex: Female

DRUGS (7)
  1. CANNABIS [Concomitant]
     Active Substance: CANNABIS SATIVA SUBSP. INDICA TOP
     Indication: DEPRESSION
  2. BACLOFEN. [Concomitant]
     Active Substance: BACLOFEN
     Indication: TREMOR
  3. LORAZEPAM. [Concomitant]
     Active Substance: LORAZEPAM
     Indication: TREMOR
  4. LORAZEPAM. [Concomitant]
     Active Substance: LORAZEPAM
     Indication: MUSCLE SPASMS
  5. AUSTEDO [Suspect]
     Active Substance: DEUTETRABENAZINE
     Dosage: SLOW TITRATION
     Route: 065
  6. BACLOFEN. [Concomitant]
     Active Substance: BACLOFEN
     Indication: MUSCLE SPASMS
  7. CBD DROPS [Concomitant]
     Dosage: DROPS

REACTIONS (4)
  - Condition aggravated [Unknown]
  - Impaired work ability [Not Recovered/Not Resolved]
  - Tardive dyskinesia [Unknown]
  - Eye movement disorder [Unknown]
